FAERS Safety Report 26021113 (Version 1)
Quarter: 2025Q4

REPORT INFORMATION
  Report Type: Spontaneous
  Country: US (occurrence: US)
  Receive Date: 20251110
  Receipt Date: 20251110
  Transmission Date: 20260119
  Serious: Yes (Other)
  Sender: ELI LILLY AND COMPANY
  Company Number: US-ELI_LILLY_AND_COMPANY-US202511005375

PATIENT
  Sex: Female

DRUGS (1)
  1. EMGALITY [Suspect]
     Active Substance: GALCANEZUMAB-GNLM
     Indication: Cluster headache
     Dosage: 300 MG, TOOK 3 EMGALITY SYRINGES FOR A TOTAL OF 300 MG
     Route: 065
     Dates: start: 20251007

REACTIONS (2)
  - Blindness unilateral [Unknown]
  - Hypersomnia [Unknown]

NARRATIVE: CASE EVENT DATE: 20251105
